FAERS Safety Report 4594831-5 (Version None)
Quarter: 2005Q1

REPORT INFORMATION
  Report Type: 
  Country: None (occurrence: None)
  Receive Date: 20050224
  Receipt Date: 20040928
  Transmission Date: 20050727
  Serious: Yes (Other)
  Sender: FDA-Public Use
  Company Number: GXKR2004US00713

PATIENT
  Age: 7 Year
  Sex: Male

DRUGS (1)
  1. FLUOXETINE [Suspect]
     Indication: AFFECTIVE DISORDER
     Dosage: 1 MG, ORAL
     Route: 048

REACTIONS (4)
  - DYSKINESIA [None]
  - EXTRAPYRAMIDAL DISORDER [None]
  - MEDICATION ERROR [None]
  - PARAESTHESIA ORAL [None]
